FAERS Safety Report 13415214 (Version 1)
Quarter: 2017Q2

REPORT INFORMATION
  Report Type: Spontaneous
  Country: US (occurrence: US)
  Receive Date: 20170407
  Receipt Date: 20170407
  Transmission Date: 20170830
  Serious: Yes (Disabling, Other)
  Sender: FDA-Public Use
  Company Number: None

PATIENT
  Age: 60 Year
  Sex: Female
  Weight: 56.25 kg

DRUGS (7)
  1. PROAIR HFA [Concomitant]
     Active Substance: ALBUTEROL SULFATE
  2. MINERAL/VITAMIN SUPPLEMENT [Concomitant]
     Active Substance: ASCORBIC ACID\BIOTIN\COBALAMIN\FOLIC ACID\IRON\NIACINAMIDE\PANTOTHENIC ACID\PYRIDOXINE HYDROCHLORIDE\RIBOFLAVIN\THIAMINE
  3. FISH OIL [Concomitant]
     Active Substance: FISH OIL
  4. SUDAFED [Concomitant]
     Active Substance: PSEUDOEPHEDRINE HYDROCHLORIDE
  5. ADVAIR HFA [Concomitant]
     Active Substance: FLUTICASONE PROPIONATE\SALMETEROL XINAFOATE
  6. ALLEGRA [Concomitant]
     Active Substance: FEXOFENADINE HYDROCHLORIDE
  7. OFLOXACIN OPHTHALMIC [Suspect]
     Active Substance: OFLOXACIN
     Indication: EAR INFECTION
     Dosage: ?          QUANTITY:4 DROP(S);?
     Route: 001
     Dates: start: 20170322, end: 20170323

REACTIONS (8)
  - Musculoskeletal pain [None]
  - Hypoacusis [None]
  - Ear discomfort [None]
  - Asthenia [None]
  - Tenderness [None]
  - Dysphagia [None]
  - Condition aggravated [None]
  - Ear pain [None]

NARRATIVE: CASE EVENT DATE: 20170322
